FAERS Safety Report 11260890 (Version 1)
Quarter: 2015Q3

REPORT INFORMATION
  Report Type: Spontaneous
  Country: CA (occurrence: CA)
  Receive Date: 20150710
  Receipt Date: 20150710
  Transmission Date: 20151125
  Serious: Yes (Hospitalization, Disabling)
  Sender: FDA-Public Use
  Company Number: CA-HOSPIRA-2742755

PATIENT
  Age: 5 Month
  Sex: Female

DRUGS (6)
  1. EPINEPHRINE. [Suspect]
     Active Substance: EPINEPHRINE
     Indication: DYSPNOEA
     Dosage: NOT REPORTED
     Route: 065
  2. VENTOLIN [Suspect]
     Active Substance: ALBUTEROL SULFATE
     Indication: PNEUMONIA
     Dosage: NOT REPORTED
     Route: 065
  3. EPINEPHRINE. [Suspect]
     Active Substance: EPINEPHRINE
     Indication: PNEUMONIA
     Dosage: NOT REPORTED
     Route: 065
  4. VENTOLIN [Suspect]
     Active Substance: ALBUTEROL SULFATE
     Indication: DYSPNOEA
     Dosage: NOT REPORTED
     Route: 065
  5. ATROVENT [Suspect]
     Active Substance: IPRATROPIUM BROMIDE
     Indication: PNEUMONIA
     Dosage: NOT REPORTED
     Route: 065
  6. ATROVENT [Suspect]
     Active Substance: IPRATROPIUM BROMIDE
     Indication: DYSPNOEA
     Dosage: NOT REPORTED
     Route: 065

REACTIONS (22)
  - Cardio-respiratory arrest [Not Recovered/Not Resolved]
  - Gait disturbance [Not Recovered/Not Resolved]
  - Disability [Not Recovered/Not Resolved]
  - Feeding disorder of infancy or early childhood [Not Recovered/Not Resolved]
  - Finger amputation [Not Recovered/Not Resolved]
  - Ligament disorder [Not Recovered/Not Resolved]
  - Lung disorder [Not Recovered/Not Resolved]
  - Pulse pressure increased [Not Recovered/Not Resolved]
  - Muscle tightness [Not Recovered/Not Resolved]
  - Pyrexia [Not Recovered/Not Resolved]
  - Cardiovascular disorder [Not Recovered/Not Resolved]
  - Dyspnoea [Not Recovered/Not Resolved]
  - Sepsis [Not Recovered/Not Resolved]
  - Grunting [Not Recovered/Not Resolved]
  - Hypoxia [Not Recovered/Not Resolved]
  - Orthosis user [Not Recovered/Not Resolved]
  - Septic shock [Not Recovered/Not Resolved]
  - Drug ineffective [Not Recovered/Not Resolved]
  - Brain injury [Not Recovered/Not Resolved]
  - Mental impairment [Not Recovered/Not Resolved]
  - Thrombosis [Not Recovered/Not Resolved]
  - Muscular weakness [Not Recovered/Not Resolved]
